FAERS Safety Report 5900618-0 (Version None)
Quarter: 2008Q3

REPORT INFORMATION
  Report Type: 
  Country: None (occurrence: None)
  Receive Date: 20080926
  Receipt Date: 20080916
  Transmission Date: 20090109
  Serious: Yes (Hospitalization)
  Sender: FDA-Public Use
  Company Number: US-GILEAD-2008-0018150

PATIENT
  Sex: Male
  Weight: 84.1 kg

DRUGS (11)
  1. AMBRISENTAN [Suspect]
     Indication: PULMONARY ARTERIAL HYPERTENSION
     Route: 048
     Dates: start: 20070619
  2. AMBRISENTAN [Suspect]
     Dates: start: 20070309, end: 20070618
  3. VIAGRA [Concomitant]
  4. COUMADIN [Concomitant]
     Dates: start: 20080807
  5. DIGOXIN [Concomitant]
  6. SPIRONOLACTONE [Concomitant]
  7. ALLOPURINOL [Concomitant]
  8. LEVOTHYROXINE SODIUM [Concomitant]
  9. PROTONIX [Concomitant]
  10. TUMS [Concomitant]
  11. DIALYVITE [Concomitant]

REACTIONS (1)
  - GASTROINTESTINAL HAEMORRHAGE [None]
